FAERS Safety Report 6100978-4 (Version None)
Quarter: 2009Q1

REPORT INFORMATION
  Report Type: 
  Country: None (occurrence: None)
  Receive Date: 20090304
  Receipt Date: 20090223
  Transmission Date: 20090719
  Serious: Yes (Life-Threatening)
  Sender: FDA-Public Use
  Company Number: CA-AMGEN-QUU335372

PATIENT
  Age: 49 Year
  Weight: 52 kg

DRUGS (15)
  1. ARANESP [Suspect]
     Indication: DRUG USE FOR UNKNOWN INDICATION
     Route: 058
  2. ASPIRIN [Concomitant]
  3. CALCIUM [Concomitant]
  4. CAPOTEN [Concomitant]
  5. CARDIZEM [Concomitant]
  6. EZETROL [Concomitant]
  7. FERROUS SULFATE TAB [Concomitant]
  8. HUMALOG [Concomitant]
  9. LASIX [Concomitant]
  10. LEVEMIR [Concomitant]
  11. RIVOTRIL [Concomitant]
  12. SODIUM BICARBONATE [Concomitant]
     Route: 048
  13. TEVETEN [Concomitant]
  14. VAGIFEM [Concomitant]
  15. ZOCOR [Concomitant]

REACTIONS (1)
  - HYPOGLYCAEMIC COMA [None]
